FAERS Safety Report 26125438 (Version 1)
Quarter: 2025Q4

REPORT INFORMATION
  Report Type: Spontaneous
  Country: GB (occurrence: GB)
  Receive Date: 20251205
  Receipt Date: 20251205
  Transmission Date: 20260119
  Serious: Yes (Other)
  Sender: CIPLA
  Company Number: GB-MHRA-MED-202511251401036940-STRVN

PATIENT

DRUGS (1)
  1. FINASTERIDE [Suspect]
     Active Substance: FINASTERIDE
     Indication: Benign prostatic hyperplasia
     Dosage: UNK
     Route: 065

REACTIONS (2)
  - Arrhythmia [Not Recovered/Not Resolved]
  - Dizziness [Not Recovered/Not Resolved]
